FAERS Safety Report 19000506 (Version 3)
Quarter: 2021Q2

REPORT INFORMATION
  Report Type: Report from Study
  Country: ES (occurrence: ES)
  Receive Date: 20210311
  Receipt Date: 20210428
  Transmission Date: 20210717
  Serious: Yes (Death)
  Sender: FDA-Public Use
  Company Number: ES-VER-202100002

PATIENT
  Age: 88 Year
  Sex: Male
  Weight: 55 kg

DRUGS (4)
  1. TORASEMIDA [Concomitant]
     Active Substance: TORSEMIDE
     Indication: CARDIOMYOPATHY
     Dosage: 5 MG ONCE A DAY (ONE TABLET IN MORNING)
     Route: 048
  2. TRINOMIA [Concomitant]
     Indication: CARDIOMYOPATHY
     Dosage: 100/40/2.5 MG ONCE A DAY (ONE TABLET IN NIGHT)
     Route: 048
     Dates: start: 20200815
  3. TRIPTORELIN PAMOATE [Suspect]
     Active Substance: TRIPTORELIN PAMOATE
     Indication: PROSTATE CANCER
     Route: 030
     Dates: start: 20190418, end: 20200420
  4. OMEPRAZOL [Concomitant]
     Active Substance: OMEPRAZOLE
     Indication: GASTROOESOPHAGEAL REFLUX DISEASE
     Route: 048
     Dates: start: 20200815

REACTIONS (1)
  - Gastric cancer [Fatal]
